FAERS Safety Report 8709356 (Version 8)
Quarter: 2014Q3

REPORT INFORMATION
  Report Type: Spontaneous
  Country: US (occurrence: US)
  Receive Date: 20120806
  Receipt Date: 20140823
  Transmission Date: 20150326
  Serious: Yes (Hospitalization, Disabling, Other)
  Sender: FDA-Public Use
  Company Number: US-009507513-1208USA000232

PATIENT
  Sex: Female
  Weight: 61.22 kg

DRUGS (3)
  1. NUVARING [Suspect]
     Active Substance: ETHINYL ESTRADIOL\ETONOGESTREL
     Indication: MENSTRUATION IRREGULAR
  2. NUVARING [Suspect]
     Active Substance: ETHINYL ESTRADIOL\ETONOGESTREL
     Indication: CONTRACEPTION
     Dosage: UNK
     Route: 067
     Dates: start: 200811, end: 20090802
  3. ARMOUR THYROID [Concomitant]
     Active Substance: THYROID, PORCINE\THYROID, UNSPECIFIED
     Dosage: UNK
     Dates: start: 2008

REACTIONS (18)
  - Pulmonary embolism [Recovered/Resolved]
  - Coagulopathy [Unknown]
  - Mood swings [Unknown]
  - Hypertension [Unknown]
  - Off label use [Unknown]
  - Anxiety [Unknown]
  - Hormone level abnormal [Not Recovered/Not Resolved]
  - Fall [Unknown]
  - Neck pain [Unknown]
  - Sleep disorder [Unknown]
  - Migraine [Unknown]
  - Musculoskeletal chest pain [Unknown]
  - Fatigue [Unknown]
  - Computerised tomogram abnormal [Unknown]
  - Deep vein thrombosis [Not Recovered/Not Resolved]
  - Musculoskeletal pain [Unknown]
  - Dizziness [Recovered/Resolved]
  - Presyncope [Unknown]

NARRATIVE: CASE EVENT DATE: 20081222
